FAERS Safety Report 14480031 (Version 1)
Quarter: 2018Q1

REPORT INFORMATION
  Report Type: Spontaneous
  Country: US (occurrence: US)
  Receive Date: 20180201
  Receipt Date: 20180201
  Transmission Date: 20180509
  Serious: No
  Sender: FDA-Public Use
  Company Number: None

PATIENT
  Age: 35 Year
  Sex: Male

DRUGS (1)
  1. TIVICAY [Suspect]
     Active Substance: DOLUTEGRAVIR SODIUM
     Route: 048
     Dates: start: 20100101, end: 20180201

REACTIONS (3)
  - Insurance issue [None]
  - Therapy cessation [None]
  - Economic problem [None]

NARRATIVE: CASE EVENT DATE: 20171101
